FAERS Safety Report 7046253-5 (Version None)
Quarter: 2010Q4

REPORT INFORMATION
  Report Type: 
  Country: None (occurrence: None)
  Receive Date: 20101014
  Receipt Date: 20101008
  Transmission Date: 20110411
  Serious: Yes (Hospitalization)
  Sender: FDA-Public Use
  Company Number: A0885666A

PATIENT
  Age: 79 Year
  Sex: Male

DRUGS (5)
  1. ADVAIR DISKUS 100/50 [Suspect]
     Indication: CHRONIC OBSTRUCTIVE PULMONARY DISEASE
     Dosage: 1BLS SEE DOSAGE TEXT
     Route: 055
  2. LISINOPRIL [Concomitant]
  3. LASIX [Concomitant]
  4. UNSPECIFIED INHALER [Concomitant]
  5. C-PAP MACHINE [Concomitant]

REACTIONS (2)
  - DRUG ADMINISTRATION ERROR [None]
  - PNEUMONIA [None]
